FAERS Safety Report 9507509 (Version 1)
Quarter: 2013Q3

REPORT INFORMATION
  Report Type: Spontaneous
  Country: US (occurrence: None)
  Receive Date: 20130904
  Receipt Date: 20130904
  Transmission Date: 20140515
  Serious: Yes (Hospitalization)
  Sender: FDA-Public Use
  Company Number: 2013GMK006658

PATIENT
  Age: 49 Year
  Sex: Female

DRUGS (3)
  1. VIORELE [Suspect]
     Indication: MENSTRUATION IRREGULAR
     Route: 048
     Dates: start: 201301, end: 201307
  2. COUMADIN (WARFARIN SODIUM) [Concomitant]
  3. OXYCONTIN (OXYCODONE HYDROCHLORIDE) [Concomitant]

REACTIONS (5)
  - Ventricular dysfunction [None]
  - Pulmonary embolism [None]
  - Hyperhidrosis [None]
  - Palpitations [None]
  - Thrombosis [None]
